FAERS Safety Report 22660537 (Version 1)
Quarter: 2023Q2

REPORT INFORMATION
  Report Type: Spontaneous
  Country: BR (occurrence: BR)
  Receive Date: 20230630
  Receipt Date: 20230630
  Transmission Date: 20230721
  Serious: Yes (Other)
  Sender: FDA-Public Use
  Company Number: BR-NOVOPROD-1082690

PATIENT
  Age: 40 Year
  Sex: Male

DRUGS (1)
  1. NOVOSEVEN [Suspect]
     Active Substance: COAGULATION FACTOR VIIA RECOMBINANT HUMAN
     Indication: Factor VIII deficiency
     Dosage: UNK

REACTIONS (3)
  - Surgery [Unknown]
  - Post procedural haemorrhage [Unknown]
  - Haemoglobin decreased [Unknown]
